FAERS Safety Report 10500031 (Version 2)
Quarter: 2014Q4

REPORT INFORMATION
  Report Type: Spontaneous
  Country: US (occurrence: US)
  Receive Date: 20141006
  Receipt Date: 20141006
  Transmission Date: 20150528
  Serious: No
  Sender: FDA-Public Use
  Company Number: US-AMGEN INC.-USASP2014043597

PATIENT
  Age: 79 Year
  Sex: Female
  Weight: 71.66 kg

DRUGS (4)
  1. PRAVASTATIN [Concomitant]
     Active Substance: PRAVASTATIN\PRAVASTATIN SODIUM
     Indication: BLOOD PRESSURE
     Dosage: UNK UNK, BID
  2. GABAPENTIN. [Concomitant]
     Active Substance: GABAPENTIN
  3. PROLIA [Suspect]
     Active Substance: DENOSUMAB
     Indication: OSTEOPOROSIS
     Dosage: 60 MG, Q6MO
     Route: 058
     Dates: start: 20140529
  4. NOVOLIN 10R [Concomitant]
     Indication: DIABETES MELLITUS
     Dosage: 8 UNIT, UNK

REACTIONS (3)
  - Pain [Recovering/Resolving]
  - Abdominal pain upper [Recovering/Resolving]
  - Abdominal distension [Unknown]

NARRATIVE: CASE EVENT DATE: 201406
